FAERS Safety Report 15185484 (Version 1)
Quarter: 2018Q3

REPORT INFORMATION
  Report Type: Report from Study
  Country: US (occurrence: US)
  Receive Date: 20180723
  Receipt Date: 20180723
  Transmission Date: 20181010
  Serious: Yes (Other)
  Sender: FDA-Public Use
  Company Number: US-SHIRE-US201827535

PATIENT
  Sex: Female

DRUGS (2)
  1. IMMUNOGLOBULIN HUMAN NORMAL [Concomitant]
     Active Substance: HUMAN IMMUNOGLOBULIN G
     Indication: PRIMARY IMMUNODEFICIENCY SYNDROME
  2. HUMAN NORMAL IMMUNOGLOBULIN; LIQUID [Suspect]
     Active Substance: HUMAN IMMUNOGLOBULIN G
     Indication: PRIMARY IMMUNODEFICIENCY SYNDROME
     Route: 042

REACTIONS (11)
  - Application site vesicles [Unknown]
  - Cardiac arrest [Unknown]
  - Supraventricular tachycardia [Unknown]
  - Cardiac ablation [Unknown]
  - Alopecia [Unknown]
  - Anxiety [Unknown]
  - Blood pressure decreased [Unknown]
  - Chest discomfort [Unknown]
  - Chills [Unknown]
  - Poor venous access [Unknown]
  - Product supply issue [Unknown]
